FAERS Safety Report 5570754-X (Version None)
Quarter: 2007Q4

REPORT INFORMATION
  Report Type: 
  Country: None (occurrence: None)
  Receive Date: 20071221
  Receipt Date: 20071009
  Transmission Date: 20080405
  Serious: No
  Sender: FDA-Public Use
  Company Number: US-BAUSCH-2007BL003686

PATIENT
  Sex: Female

DRUGS (1)
  1. ZYLET [Suspect]
     Indication: CORNEAL ABRASION
     Route: 047
     Dates: start: 20071001, end: 20071001

REACTIONS (1)
  - EYE IRRITATION [None]
